FAERS Safety Report 10549732 (Version 3)
Quarter: 2014Q4

REPORT INFORMATION
  Report Type: Spontaneous
  Country: GB (occurrence: GB)
  Receive Date: 20141028
  Receipt Date: 20141230
  Transmission Date: 20150529
  Serious: Yes (Hospitalization)
  Sender: FDA-Public Use
  Company Number: GB-OTSUKA-EU-2014-10523

PATIENT

DRUGS (7)
  1. DIAZEPAM. [Concomitant]
     Active Substance: DIAZEPAM
     Indication: AGITATION
     Dosage: UNK, UNKNOWN
     Route: 065
  2. LORAZEPAM. [Concomitant]
     Active Substance: LORAZEPAM
     Indication: AGITATION
     Dosage: UNK, UNKNOWN
     Route: 065
  3. ABILIFY MAINTENA [Suspect]
     Active Substance: ARIPIPRAZOLE
     Indication: SCHIZOPHRENIA
     Dosage: 400 MG MILLIGRAM(S), BIW
     Route: 030
     Dates: start: 20140709, end: 20141016
  4. SODIUM VALPROATE [Concomitant]
     Active Substance: VALPROATE SODIUM
     Indication: MOOD SWINGS
     Dosage: 600 MG MILLIGRAM(S), QD
     Route: 065
  5. HALOPERIDOL. [Concomitant]
     Active Substance: HALOPERIDOL
     Indication: AGITATION
     Dosage: UNK, UNKNOWN
     Route: 065
  6. ABILIFY [Suspect]
     Active Substance: ARIPIPRAZOLE
     Indication: SCHIZOPHRENIA
     Dosage: 10 - 20 MG QD
     Route: 048
     Dates: start: 20140709, end: 201408
  7. SODIUM VALPROATE [Concomitant]
     Active Substance: VALPROATE SODIUM
     Dosage: 800 MG MILLIGRAM(S), QPM
     Route: 065

REACTIONS (10)
  - Tachyphrenia [Unknown]
  - Akathisia [Unknown]
  - Persecutory delusion [Unknown]
  - Hallucination, visual [Unknown]
  - Overdose [Unknown]
  - Verbal abuse [Unknown]
  - Psychotic disorder [Unknown]
  - Physical assault [Unknown]
  - Hallucination, auditory [Unknown]
  - Agitation [Unknown]

NARRATIVE: CASE EVENT DATE: 201409
